FAERS Safety Report 21603048 (Version 2)
Quarter: 2022Q4

REPORT INFORMATION
  Report Type: Spontaneous
  Country: FR (occurrence: FR)
  Receive Date: 20221116
  Receipt Date: 20221129
  Transmission Date: 20230113
  Serious: Yes (Hospitalization)
  Sender: FDA-Public Use
  Company Number: None

PATIENT
  Age: 70 Year
  Sex: Female

DRUGS (17)
  1. ROPIVACAINE HYDROCHLORIDE [Suspect]
     Active Substance: ROPIVACAINE HYDROCHLORIDE
     Indication: General anaesthesia
     Dosage: 120 MG
     Route: 042
     Dates: start: 20220329, end: 20220329
  2. DEXAMETHASONE SODIUM PHOSPHATE [Suspect]
     Active Substance: DEXAMETHASONE SODIUM PHOSPHATE
     Indication: General anaesthesia
     Dosage: 8 MG
     Route: 042
     Dates: start: 20220329, end: 20220329
  3. TRANEXAMIC ACID [Suspect]
     Active Substance: TRANEXAMIC ACID
     Indication: Haemorrhage prophylaxis
     Dosage: 1 G
     Route: 042
     Dates: start: 20220329, end: 20220329
  4. TRANEXAMIC ACID [Suspect]
     Active Substance: TRANEXAMIC ACID
     Route: 042
     Dates: start: 20220329, end: 20220329
  5. CEFUROXIME SODIUM [Suspect]
     Active Substance: CEFUROXIME SODIUM
     Indication: Antibiotic prophylaxis
     Dosage: 1.5 MG
     Route: 042
     Dates: start: 20220329, end: 20220329
  6. KETOPROFEN [Suspect]
     Active Substance: KETOPROFEN
     Indication: General anaesthesia
     Dosage: 100 MG
     Route: 042
     Dates: start: 20220329, end: 20220329
  7. ATRACURIUM BESYLATE [Suspect]
     Active Substance: ATRACURIUM BESYLATE
     Indication: General anaesthesia
     Dosage: 1ST INJECTION 30MG?2ND INJECTION 10MG?BESILATE
     Route: 042
     Dates: start: 20220329, end: 20220329
  8. ATRACURIUM BESYLATE [Suspect]
     Active Substance: ATRACURIUM BESYLATE
     Dosage: 10 MG (SECOND INJECTION)
     Route: 042
     Dates: start: 20220329, end: 20220329
  9. NEFOPAM [Suspect]
     Active Substance: NEFOPAM
     Indication: General anaesthesia
     Dosage: 20 MG
     Route: 042
     Dates: start: 20220329, end: 20220329
  10. SUFENTANIL [Suspect]
     Active Substance: SUFENTANIL
     Indication: General anaesthesia
     Dosage: 1ST INJECTION 20?G?2ND INJECTION 5?G?3RD INJECTION 5?G
     Route: 042
     Dates: start: 20220329, end: 20220329
  11. SUFENTANIL [Suspect]
     Active Substance: SUFENTANIL
     Dosage: 3RD INJECTION 5?G
     Route: 042
     Dates: start: 20220329, end: 20220329
  12. SUFENTANIL [Suspect]
     Active Substance: SUFENTANIL
     Dosage: SECOND INJECTION 5?G
     Route: 042
     Dates: start: 20220329, end: 20220329
  13. KETAMINE [Suspect]
     Active Substance: KETAMINE
     Indication: General anaesthesia
     Dosage: 15 MG
     Route: 042
     Dates: start: 20220329, end: 20220329
  14. PROPOFOL [Suspect]
     Active Substance: PROPOFOL
     Indication: General anaesthesia
     Dosage: 100 MGS
     Route: 042
     Dates: start: 20220329, end: 20220329
  15. DROPERIDOL [Suspect]
     Active Substance: DROPERIDOL
     Indication: General anaesthesia
     Dosage: 1.25 MG
     Route: 042
     Dates: start: 20220329, end: 20220329
  16. ATENOLOL [Concomitant]
     Active Substance: ATENOLOL
     Indication: Product used for unknown indication
     Dosage: 1 DF, IN MORNING
  17. ACETAMINOPHEN [Concomitant]
     Active Substance: ACETAMINOPHEN
     Indication: Product used for unknown indication
     Dosage: UNK
     Dates: start: 20220329, end: 20220329

REACTIONS (1)
  - Anaphylactic reaction [Recovered/Resolved]

NARRATIVE: CASE EVENT DATE: 20220329
